FAERS Safety Report 25683821 (Version 2)
Quarter: 2025Q3

REPORT INFORMATION
  Report Type: 
  Country: CN (occurrence: CN)
  Receive Date: 20250814
  Receipt Date: 20250815
  Transmission Date: 20251020
  Serious: Yes (Life-Threatening, Hospitalization)
  Sender: JIANGSU HANSOH PHARMACEUTICAL GROUP CO., LTD.
  Company Number: CN-Hansoh-20252190014839

PATIENT
  Age: 45 Year
  Sex: Male
  Weight: 67 kg

DRUGS (3)
  1. TISLELIZUMAB [Suspect]
     Active Substance: TISLELIZUMAB
     Indication: Nasopharyngeal cancer
     Dosage: 200 MG, QD
     Route: 041
     Dates: start: 20250717, end: 20250717
  2. GEMCITABINE HYDROCHLORIDE [Suspect]
     Active Substance: GEMCITABINE HYDROCHLORIDE
     Indication: Nasopharyngeal cancer
     Dosage: 1.5 G, QD
     Route: 041
     Dates: start: 20250717, end: 20250717
  3. CISPLATIN [Suspect]
     Active Substance: CISPLATIN
     Indication: Nasopharyngeal cancer
     Dosage: 35MG,QD
     Route: 041
     Dates: start: 20250717, end: 20250719

REACTIONS (3)
  - Myelosuppression [Recovering/Resolving]
  - Epistaxis [Recovering/Resolving]
  - Off label use [Unknown]

NARRATIVE: CASE EVENT DATE: 20250731
